FAERS Safety Report 9816357 (Version 2)
Quarter: 2014Q1

REPORT INFORMATION
  Report Type: Spontaneous
  Country: US (occurrence: US)
  Receive Date: 20140114
  Receipt Date: 20140120
  Transmission Date: 20141002
  Serious: Yes (Death, Life-Threatening, Other)
  Sender: FDA-Public Use
  Company Number: US-MERCK-1401USA003520

PATIENT
  Sex: Female
  Weight: 72.56 kg

DRUGS (4)
  1. JANUVIA [Suspect]
     Indication: TYPE 2 DIABETES MELLITUS
     Dosage: 100 MG, QD
     Route: 048
     Dates: start: 20100329, end: 20120104
  2. METFORMIN [Concomitant]
     Indication: TYPE 2 DIABETES MELLITUS
     Dosage: 1000 MG, BID
     Route: 048
  3. GLIPIZIDE [Concomitant]
     Indication: TYPE 2 DIABETES MELLITUS
     Dosage: 10 MG, BID
     Route: 048
  4. PREMARIN [Concomitant]
     Indication: MENOPAUSE
     Dosage: 0.3 MG, QD
     Route: 048
     Dates: start: 1990, end: 201111

REACTIONS (22)
  - Cholangiocarcinoma [Fatal]
  - Metastatic neoplasm [Fatal]
  - Pancreatic carcinoma [Unknown]
  - Renal failure [Unknown]
  - Hypertension [Unknown]
  - Diabetes mellitus [Unknown]
  - Paracentesis [Unknown]
  - Renal disorder [Unknown]
  - Anaemia [Unknown]
  - Hyperkalaemia [Unknown]
  - Arthritis [Unknown]
  - Palmar erythema [Unknown]
  - Ascites [Unknown]
  - Cachexia [Unknown]
  - Haemorrhoids [Unknown]
  - Incontinence [Unknown]
  - Blood alkaline phosphatase increased [Unknown]
  - Hysterectomy [Unknown]
  - Appendicectomy [Unknown]
  - Haemorrhoids [Unknown]
  - Oedema peripheral [Unknown]
  - Hypersensitivity [Unknown]
